FAERS Safety Report 11498291 (Version 2)
Quarter: 2015Q4

REPORT INFORMATION
  Report Type: Spontaneous
  Country: US (occurrence: US)
  Receive Date: 20150911
  Receipt Date: 20151016
  Transmission Date: 20160304
  Serious: No
  Sender: FDA-Public Use
  Company Number: US-ASTRAZENECA-2015SE42967

PATIENT
  Sex: Female
  Weight: 61.2 kg

DRUGS (8)
  1. FENOFIBRATE. [Concomitant]
     Active Substance: FENOFIBRATE
     Indication: BLOOD CHOLESTEROL ABNORMAL
     Route: 048
  2. GLIPIZIDE. [Concomitant]
     Active Substance: GLIPIZIDE
     Indication: TYPE 2 DIABETES MELLITUS
  3. LEVOTHYROXINE. [Concomitant]
     Active Substance: LEVOTHYROXINE
  4. TIZANIDINE. [Concomitant]
     Active Substance: TIZANIDINE
     Indication: MUSCLE RELAXANT THERAPY
  5. BYDUREON [Suspect]
     Active Substance: EXENATIDE
     Indication: TYPE 2 DIABETES MELLITUS
     Dosage: 2 MG, ONCE A WEEK, 4 COUNT
     Route: 058
     Dates: start: 20150422
  6. HYDROCHLOROTHIAZIDE. [Concomitant]
     Active Substance: HYDROCHLOROTHIAZIDE
     Dosage: EVERY DAY
  7. MELOXICAM. [Concomitant]
     Active Substance: MELOXICAM
  8. JANUMET [Concomitant]
     Active Substance: METFORMIN HYDROCHLORIDE\SITAGLIPTIN PHOSPHATE
     Indication: TYPE 2 DIABETES MELLITUS
     Dosage: 50/1000

REACTIONS (10)
  - Chest pain [Unknown]
  - Intentional product misuse [Unknown]
  - Underdose [Unknown]
  - Product quality issue [Unknown]
  - Pharyngeal oedema [Unknown]
  - Gingival swelling [Unknown]
  - Regurgitation [Unknown]
  - Dyspepsia [Unknown]
  - Oral discomfort [Unknown]
  - Energy increased [Unknown]

NARRATIVE: CASE EVENT DATE: 20150429
